FAERS Safety Report 8430140-1 (Version None)
Quarter: 2012Q2

REPORT INFORMATION
  Report Type: 
  Country: None (occurrence: None)
  Receive Date: 20120612
  Receipt Date: 20120602
  Transmission Date: 20120825
  Serious: Yes (Other)
  Sender: FDA-Public Use
  Company Number: GB-MERCK-1206USA01153

PATIENT

DRUGS (2)
  1. METFORMIN [Concomitant]
     Route: 065
  2. JANUVIA [Suspect]
     Route: 048

REACTIONS (1)
  - CARDIAC DISORDER [None]
